FAERS Safety Report 8312169-7 (Version None)
Quarter: 2012Q2

REPORT INFORMATION
  Report Type: 
  Country: None (occurrence: None)
  Receive Date: 20120425
  Receipt Date: 20120411
  Transmission Date: 20120825
  Serious: Yes (Other)
  Sender: FDA-Public Use
  Company Number: PHHY2012JP009939

PATIENT

DRUGS (1)
  1. NEORAL [Suspect]
     Dosage: UNK UKN, UNK
     Route: 048

REACTIONS (2)
  - ORAL ADMINISTRATION COMPLICATION [None]
  - PNEUMONIA ASPIRATION [None]
